FAERS Safety Report 9445837 (Version 1)
Quarter: 2013Q3

REPORT INFORMATION
  Report Type: Spontaneous
  Country: AU (occurrence: AU)
  Receive Date: 20130807
  Receipt Date: 20130807
  Transmission Date: 20140515
  Serious: Yes (Other)
  Sender: FDA-Public Use
  Company Number: AU-BRISTOL-MYERS SQUIBB COMPANY-19159532

PATIENT
  Sex: 0

DRUGS (1)
  1. ONGLYZA TABS 5 MG [Suspect]
     Route: 048

REACTIONS (1)
  - Renal failure [Unknown]
